FAERS Safety Report 7924093-X (Version None)
Quarter: 2011Q4

REPORT INFORMATION
  Report Type: 
  Country: None (occurrence: None)
  Receive Date: 20111117
  Receipt Date: 20110214
  Transmission Date: 20120403
  Serious: No
  Sender: FDA-Public Use
  Company Number: US-AMGEN-USASP2010010882

PATIENT
  Age: 67 Year
  Sex: Female

DRUGS (2)
  1. ENBREL [Suspect]
     Indication: RHEUMATOID ARTHRITIS
     Dosage: 25 MG, QWK
     Dates: start: 19980101
  2. TREXALL [Concomitant]

REACTIONS (9)
  - BRONCHITIS [None]
  - ASTHENIA [None]
  - CHEST PAIN [None]
  - PANIC REACTION [None]
  - PYREXIA [None]
  - DYSPNOEA [None]
  - THROAT IRRITATION [None]
  - NERVOUSNESS [None]
  - PRODUCTIVE COUGH [None]
